FAERS Safety Report 7736788-1 (Version None)
Quarter: 2011Q3

REPORT INFORMATION
  Report Type: 
  Country: None (occurrence: None)
  Receive Date: 20110908
  Receipt Date: 20110906
  Transmission Date: 20111222
  Serious: Yes (Death, Other)
  Sender: FDA-Public Use
  Company Number: PHEH2005US10721

PATIENT
  Sex: Female

DRUGS (29)
  1. MEPERGAN FORTIS [Concomitant]
  2. DILAUDID [Concomitant]
  3. FAMVIR /UNK/ [Concomitant]
     Dosage: 500 MG, Q8H
     Route: 048
  4. KETOCONAZOLE [Concomitant]
  5. MELPHALAN [Concomitant]
     Indication: MULTIPLE MYELOMA
  6. EFFEXOR [Concomitant]
     Dosage: UNK
  7. METHADONE HCL [Concomitant]
     Dosage: 10 MG, BID
     Route: 048
  8. GLYBURIDE [Concomitant]
     Dosage: 5 MG, QD
     Route: 048
  9. BACTRIM DS [Concomitant]
  10. PAXIL [Concomitant]
     Indication: DEPRESSION
     Dosage: 10 MG, DAILY
  11. BEXTRA [Concomitant]
     Dosage: 20 MG, QD
     Dates: start: 20030228
  12. KLONOPIN [Concomitant]
  13. FLURAZEPAM [Concomitant]
     Dosage: 15 MG, QHS
     Route: 048
  14. BACTRIM [Concomitant]
     Dosage: 2 DAYS PER WEEK
     Dates: start: 20030228
  15. ELAVIL [Concomitant]
     Dosage: UNK
  16. CLINORIL [Concomitant]
     Dosage: 150 MG, BID
     Route: 048
  17. COUMADIN [Concomitant]
  18. MAGNESIUM OXIDE [Concomitant]
  19. DECADRON [Suspect]
     Indication: MULTIPLE MYELOMA
     Dates: start: 20021121, end: 20030814
  20. PEPCID [Concomitant]
  21. XANAX [Concomitant]
     Indication: INSOMNIA
     Dosage: 0.5 MG, QHS
     Route: 048
     Dates: start: 20010326
  22. THALIDOMIDE [Concomitant]
     Indication: MULTIPLE MYELOMA
  23. LACTULOSE [Concomitant]
  24. COLACE [Concomitant]
  25. AREDIA [Suspect]
     Indication: MULTIPLE MYELOMA
     Dosage: 90 MG, UNK
     Route: 042
     Dates: start: 20010105, end: 20030908
  26. PREDNISONE [Concomitant]
  27. CYMBALTA [Concomitant]
  28. AMITRIPTYLINE HCL [Concomitant]
     Dosage: UNK
  29. ERTAPENEM [Concomitant]
     Dosage: INTRAVENOUS
     Dates: start: 20030101, end: 20030101

REACTIONS (77)
  - ACTINOMYCOSIS [None]
  - KLEBSIELLA INFECTION [None]
  - RASH [None]
  - ALOPECIA [None]
  - COUGH [None]
  - ATELECTASIS [None]
  - MALAISE [None]
  - DIZZINESS [None]
  - DEMENTIA [None]
  - HYPOAESTHESIA [None]
  - PANIC DISORDER [None]
  - DERMATITIS CONTACT [None]
  - AORTIC ARTERIOSCLEROSIS [None]
  - OSTEONECROSIS OF JAW [None]
  - OSTEOMYELITIS [None]
  - WEIGHT DECREASED [None]
  - ULCERATIVE KERATITIS [None]
  - RED BLOOD CELL COUNT DECREASED [None]
  - ERYTHEMA [None]
  - AGITATION [None]
  - BLOOD LACTATE DEHYDROGENASE INCREASED [None]
  - ORAL PAIN [None]
  - BACK PAIN [None]
  - LEUKOPENIA [None]
  - PAIN [None]
  - CHEST PAIN [None]
  - SYNCOPE [None]
  - URINARY RETENTION [None]
  - INSOMNIA [None]
  - DEMENTIA ALZHEIMER'S TYPE [None]
  - MOUTH ULCERATION [None]
  - SWELLING FACE [None]
  - DEATH [None]
  - OSTEITIS [None]
  - EATING DISORDER [None]
  - CATARACT [None]
  - MEAN CELL HAEMOGLOBIN [None]
  - RED CELL DISTRIBUTION WIDTH INCREASED [None]
  - DECREASED APPETITE [None]
  - URINARY TRACT INFECTION [None]
  - DYSPHONIA [None]
  - DYSPHAGIA [None]
  - INFLAMMATION [None]
  - FIBROSIS [None]
  - BLOODY DISCHARGE [None]
  - DENTAL CARIES [None]
  - HAEMATOCRIT DECREASED [None]
  - VISION BLURRED [None]
  - BLOOD GLUCOSE INCREASED [None]
  - TOOTH FRACTURE [None]
  - SINUS ARRHYTHMIA [None]
  - HYPONATRAEMIA [None]
  - STOMATITIS [None]
  - CONFUSIONAL STATE [None]
  - ATROPHY [None]
  - BONE DISORDER [None]
  - PURULENT DISCHARGE [None]
  - NEOPLASM MALIGNANT [None]
  - RIB FRACTURE [None]
  - BONE LESION [None]
  - HAEMOGLOBIN DECREASED [None]
  - HEADACHE [None]
  - CLOSTRIDIAL INFECTION [None]
  - ASTHENIA [None]
  - HERPES ZOSTER [None]
  - CARDIOMEGALY [None]
  - NEURITIS [None]
  - ENDOCARDITIS [None]
  - OSTEOSCLEROSIS [None]
  - NORMOCHROMIC NORMOCYTIC ANAEMIA [None]
  - MEAN CELL VOLUME INCREASED [None]
  - EYE SWELLING [None]
  - OEDEMA PERIPHERAL [None]
  - FATIGUE [None]
  - CREATININE RENAL CLEARANCE DECREASED [None]
  - POST HERPETIC NEURALGIA [None]
  - GOITRE [None]
